FAERS Safety Report 12761630 (Version 2)
Quarter: 2017Q4

REPORT INFORMATION
  Report Type: Spontaneous
  Country: IN (occurrence: IN)
  Receive Date: 20160920
  Receipt Date: 20171012
  Transmission Date: 20180320
  Serious: Yes (Hospitalization, Other)
  Sender: FDA-Public Use
  Company Number: IN-ACCORD-044137

PATIENT
  Age: 36 Year
  Sex: Male

DRUGS (2)
  1. INDOMETACIN/INDOMETACIN MEGLUMINE/INDOMETACIN SODIUM/INDOMETACIN SODIUM TRIHYDRATE/INDOMETACIN TROPI [Concomitant]
     Indication: ANKYLOSING SPONDYLITIS
  2. METHOTREXATE. [Suspect]
     Active Substance: METHOTREXATE
     Indication: ANKYLOSING SPONDYLITIS

REACTIONS (1)
  - Haemolytic anaemia [Unknown]
